FAERS Safety Report 5949978-5 (Version None)
Quarter: 2008Q4

REPORT INFORMATION
  Report Type: 
  Country: None (occurrence: None)
  Receive Date: 20081112
  Receipt Date: 20081110
  Transmission Date: 20090506
  Serious: Yes (Other)
  Sender: FDA-Public Use
  Company Number: GB-JNJFOC-20081101956

PATIENT
  Age: 30 Year
  Sex: Female

DRUGS (2)
  1. OFLOXACIN [Suspect]
     Indication: PELVIC INFLAMMATORY DISEASE
     Route: 048
  2. METRONIDAZOLE [Concomitant]
     Indication: PELVIC INFLAMMATORY DISEASE
     Route: 048

REACTIONS (4)
  - ANXIETY [None]
  - CHEST PAIN [None]
  - PANIC REACTION [None]
  - PARAESTHESIA [None]
